FAERS Safety Report 5847743-0 (Version None)
Quarter: 2008Q3

REPORT INFORMATION
  Report Type: 
  Country: None (occurrence: None)
  Receive Date: 20080814
  Receipt Date: 20080814
  Transmission Date: 20090109
  Serious: Yes (Life-Threatening, Other)
  Sender: FDA-Public Use
  Company Number: None

PATIENT
  Age: 54 Year
  Sex: Female
  Weight: 70.3075 kg

DRUGS (3)
  1. AVANDAMET [Suspect]
     Indication: DIABETES MELLITUS
     Dosage: 1 TAB IN AM MOUTH
     Route: 048
     Dates: start: 20080717
  2. AVANDAMET [Suspect]
     Indication: HYPERTENSION
     Dosage: 1 TAB IN AM MOUTH
     Route: 048
     Dates: start: 20080717
  3. DIOVAN HCT [Suspect]
     Dosage: 1 TAB IN AM MOUTH
     Route: 048
     Dates: start: 20080717

REACTIONS (1)
  - HEAD INJURY [None]
